FAERS Safety Report 15902294 (Version 1)
Quarter: 2019Q1

REPORT INFORMATION
  Report Type: Spontaneous
  Country: US (occurrence: US)
  Receive Date: 20190201
  Receipt Date: 20190201
  Transmission Date: 20190417
  Serious: No
  Sender: FDA-Public Use
  Company Number: US-GLAXOSMITHKLINE-US2019GSK017183

PATIENT
  Age: 53 Year
  Sex: Female

DRUGS (1)
  1. ADVAIR DISKUS [Suspect]
     Active Substance: FLUTICASONE PROPIONATE\SALMETEROL XINAFOATE
     Indication: PRODUCT USED FOR UNKNOWN INDICATION
     Dosage: 2 PUFF(S), QD
     Route: 055
     Dates: start: 201807, end: 201901

REACTIONS (4)
  - Dyspnoea [Unknown]
  - Dyspnoea exertional [Unknown]
  - Product dose omission [Unknown]
  - Inhalation therapy [Unknown]

NARRATIVE: CASE EVENT DATE: 20190125
